FAERS Safety Report 10775153 (Version 1)
Quarter: 2015Q1

REPORT INFORMATION
  Report Type: Spontaneous
  Country: US (occurrence: None)
  Receive Date: 20150205
  Receipt Date: 20150205
  Transmission Date: 20150721
  Serious: Yes (Hospitalization)
  Sender: FDA-Public Use
  Company Number: ABR_01967_2015

PATIENT
  Age: 43 Year
  Sex: Male

DRUGS (1)
  1. AMPHETAMINE [Suspect]
     Active Substance: AMPHETAMINE
     Indication: PRODUCT USED FOR UNKNOWN INDICATION
     Dosage: DF

REACTIONS (11)
  - Mental status changes [None]
  - Anuria [None]
  - Aortic dissection [None]
  - Jugular vein thrombosis [None]
  - Muscular weakness [None]
  - Pneumonia [None]
  - Renal infarct [None]
  - Drug abuse [None]
  - Ventricular hypertrophy [None]
  - Cerebral artery embolism [None]
  - Renal atrophy [None]
